FAERS Safety Report 13502612 (Version 1)
Quarter: 2017Q2

REPORT INFORMATION
  Report Type: Spontaneous
  Country: US (occurrence: US)
  Receive Date: 20170501
  Receipt Date: 20170501
  Transmission Date: 20170830
  Serious: Yes (Other)
  Sender: FDA-Public Use
  Company Number: None

PATIENT
  Age: 92 Year
  Sex: Female
  Weight: 58.5 kg

DRUGS (1)
  1. XIIDRA [Suspect]
     Active Substance: LIFITEGRAST
     Indication: DRY EYE
     Dosage: 1 GITT DROP(S) TWICE A DAY
     Route: 047
     Dates: start: 20170426, end: 20170428

REACTIONS (1)
  - Photosensitivity reaction [None]

NARRATIVE: CASE EVENT DATE: 20170427
